FAERS Safety Report 5688718-4 (Version None)
Quarter: 2008Q1

REPORT INFORMATION
  Report Type: 
  Country: None (occurrence: None)
  Receive Date: 20080328
  Receipt Date: 20080328
  Transmission Date: 20080703
  Serious: Yes (Life-Threatening, Other)
  Sender: FDA-Public Use
  Company Number: None

PATIENT
  Age: 45 Year
  Sex: Female
  Weight: 63.5036 kg

DRUGS (2)
  1. SINGULAIR [Suspect]
     Indication: ASTHMA
     Dosage: 1 TABLET EVERY EVENING PO
     Route: 048
     Dates: start: 20070301, end: 20071001
  2. SINGULAIR [Suspect]
     Indication: ASTHMA
     Dosage: 1 TABLET EVERY EVENING PO
     Route: 048
     Dates: start: 20070301, end: 20080326

REACTIONS (7)
  - ANXIETY [None]
  - COUGH [None]
  - DEPRESSION [None]
  - FEELING GUILTY [None]
  - NASAL CONGESTION [None]
  - PANIC ATTACK [None]
  - SUICIDAL IDEATION [None]
